FAERS Safety Report 9748677 (Version 2)
Quarter: 2013Q4

REPORT INFORMATION
  Report Type: Spontaneous
  Country: FR (occurrence: FR)
  Receive Date: 20131212
  Receipt Date: 20131226
  Transmission Date: 20140711
  Serious: Yes (Hospitalization)
  Sender: FDA-Public Use
  Company Number: FR-B.I. PHARMACEUTICALS,INC./RIDGEFIELD-2013-BI-41034FF

PATIENT
  Sex: Female

DRUGS (5)
  1. PRADAXA [Suspect]
     Indication: ATRIAL FIBRILLATION
     Dosage: 220 MG
     Route: 048
     Dates: start: 201209, end: 20131122
  2. PRADAXA [Suspect]
     Dosage: 300 MG
     Route: 048
  3. CELIPROLOL [Concomitant]
     Dosage: 200 MG
  4. LASILIX [Concomitant]
     Dosage: 80 MG
  5. DOLIPRANE [Concomitant]

REACTIONS (2)
  - Atrial thrombosis [Not Recovered/Not Resolved]
  - Ischaemic stroke [Not Recovered/Not Resolved]
